FAERS Safety Report 14019820 (Version 2)
Quarter: 2017Q3

REPORT INFORMATION
  Report Type: Spontaneous
  Country: US (occurrence: US)
  Receive Date: 20170928
  Receipt Date: 20170928
  Transmission Date: 20171128
  Serious: Yes (Hospitalization)
  Sender: FDA-Public Use
  Company Number: US-CIPLA (EU) LIMITED-APC201111-002244

PATIENT

DRUGS (5)
  1. FLUOXETINE [Suspect]
     Active Substance: FLUOXETINE HYDROCHLORIDE
     Dosage: UNK
     Route: 048
  2. ALCOHOL. [Suspect]
     Active Substance: ALCOHOL
     Dosage: UNK
     Route: 048
  3. LEVETIRACETAM. [Suspect]
     Active Substance: LEVETIRACETAM
     Dosage: 1000 MG, UNK
     Route: 042
  4. LORAZEPAM. [Suspect]
     Active Substance: LORAZEPAM
     Dosage: 4 MG, UNK
     Route: 042
  5. LAMOTRIGINE. [Suspect]
     Active Substance: LAMOTRIGINE
     Dosage: UNK
     Route: 048

REACTIONS (5)
  - Tachycardia [Recovering/Resolving]
  - Intentional overdose [Unknown]
  - Seizure [Recovered/Resolved]
  - Exposure during pregnancy [Unknown]
  - Drug ineffective [Unknown]
